FAERS Safety Report 7268934-0 (Version None)
Quarter: 2011Q1

REPORT INFORMATION
  Report Type: 
  Country: None (occurrence: None)
  Receive Date: 20110201
  Receipt Date: 20110124
  Transmission Date: 20110831
  Serious: Yes (Death, Hospitalization, Other)
  Sender: FDA-Public Use
  Company Number: US-MERCK-0702USA03433

PATIENT
  Age: 75 Year
  Sex: Female
  Weight: 45 kg

DRUGS (12)
  1. FOSAMAX [Suspect]
     Indication: OSTEOPOROSIS
     Route: 048
     Dates: start: 19951201, end: 20000101
  2. METHOTREXATE [Concomitant]
     Route: 065
  3. TALACEN [Concomitant]
     Route: 065
  4. CYTOTEC [Concomitant]
     Route: 065
     Dates: start: 19940124
  5. FORTEO [Concomitant]
     Route: 058
  6. CALCIUM (UNSPECIFIED) [Concomitant]
     Route: 065
  7. FOSAMAX [Suspect]
     Route: 048
     Dates: start: 20000101, end: 20060829
  8. FOLIC ACID [Concomitant]
     Route: 065
  9. PRILOSEC [Concomitant]
     Route: 048
  10. IRON (UNSPECIFIED) [Concomitant]
     Route: 065
  11. CELEBREX [Concomitant]
     Route: 065
  12. PREDNISONE [Suspect]
     Route: 065

REACTIONS (58)
  - BASAL CELL CARCINOMA [None]
  - ANGIOPATHY [None]
  - FALL [None]
  - DECUBITUS ULCER [None]
  - INCREASED TENDENCY TO BRUISE [None]
  - GINGIVAL BLEEDING [None]
  - CONTUSION [None]
  - BRONCHITIS [None]
  - OSTEONECROSIS OF JAW [None]
  - DEATH [None]
  - PATHOLOGICAL FRACTURE [None]
  - BONE DENSITY DECREASED [None]
  - PSORIASIS [None]
  - PNEUMONIA [None]
  - MITRAL VALVE PROLAPSE [None]
  - ARTHROPOD BITE [None]
  - GLAUCOMA [None]
  - RENAL FAILURE ACUTE [None]
  - FISTULA DISCHARGE [None]
  - DRY SKIN [None]
  - DENTAL FISTULA [None]
  - ORAL INFECTION [None]
  - ORAL DISORDER [None]
  - LOOSE TOOTH [None]
  - BUNION [None]
  - ARTHROPATHY [None]
  - GINGIVAL PAIN [None]
  - LIP ULCERATION [None]
  - IMPAIRED HEALING [None]
  - SKIN ULCER [None]
  - SQUAMOUS CELL CARCINOMA OF SKIN [None]
  - PERIPHERAL ARTERIAL OCCLUSIVE DISEASE [None]
  - ANAEMIA OF CHRONIC DISEASE [None]
  - CARPAL TUNNEL SYNDROME [None]
  - RASH [None]
  - MYELODYSPLASTIC SYNDROME [None]
  - GINGIVAL DISORDER [None]
  - EYE DISORDER [None]
  - PHOTODERMATOSIS [None]
  - PERIPHERAL VASCULAR DISORDER [None]
  - EXCORIATION [None]
  - GINGIVITIS [None]
  - GINGIVAL RECESSION [None]
  - OSTEOMYELITIS [None]
  - ACTINIC KERATOSIS [None]
  - TREATMENT NONCOMPLIANCE [None]
  - TOOTH DISORDER [None]
  - CARDIAC MURMUR [None]
  - OEDEMA MOUTH [None]
  - MELANOCYTIC NAEVUS [None]
  - CELLULITIS [None]
  - DEHYDRATION [None]
  - INTERVERTEBRAL DISC DEGENERATION [None]
  - SEBORRHOEIC KERATOSIS [None]
  - POOR PERSONAL HYGIENE [None]
  - WEIGHT DECREASED [None]
  - ANTIBIOTIC RESISTANT STAPHYLOCOCCUS TEST POSITIVE [None]
  - OEDEMA PERIPHERAL [None]
